FAERS Safety Report 23293299 (Version 1)
Quarter: 2023Q4

REPORT INFORMATION
  Report Type: Spontaneous
  Country: US (occurrence: US)
  Receive Date: 20231213
  Receipt Date: 20231213
  Transmission Date: 20240109
  Serious: No
  Sender: FDA-Public Use
  Company Number: US-NOVOPROD-1041316

PATIENT
  Age: 49 Year
  Sex: Male
  Weight: 95.25 kg

DRUGS (2)
  1. LEVEMIR [Suspect]
     Active Substance: INSULIN DETEMIR
     Indication: Type 2 diabetes mellitus
     Dosage: 50 MG, BID
     Route: 058
     Dates: start: 2022
  2. TESTOSTERONE [Suspect]
     Active Substance: TESTOSTERONE
     Indication: Blood testosterone decreased
     Dosage: 400 MG EVERY 14 DAYS

REACTIONS (5)
  - Gastrointestinal infection [Unknown]
  - Diarrhoea [Unknown]
  - Feeling abnormal [Unknown]
  - Abdominal pain upper [Unknown]
  - Blood glucose increased [Unknown]
